FAERS Safety Report 16721529 (Version 1)
Quarter: 2019Q3

REPORT INFORMATION
  Report Type: Spontaneous
  Country: US (occurrence: US)
  Receive Date: 20190820
  Receipt Date: 20190820
  Transmission Date: 20191005
  Serious: No
  Sender: FDA-Public Use
  Company Number: US-BIODELIVERY SCIENCES INTERNATIONAL-2018BDSI0496

PATIENT
  Age: 59 Year
  Sex: Female

DRUGS (10)
  1. BUPRENORPHINE. [Suspect]
     Active Substance: BUPRENORPHINE
     Indication: PAIN
     Route: 002
  2. CURCUMIN [Concomitant]
     Active Substance: CURCUMIN
     Indication: OSTEOARTHRITIS
     Dosage: AS NEEDED
  3. DIAZEPAM. [Concomitant]
     Active Substance: DIAZEPAM
     Indication: INSOMNIA
  4. DIAZEPAM. [Concomitant]
     Active Substance: DIAZEPAM
     Indication: ANXIETY
     Dosage: 5 MG OR 2.5 MG (HALF)?ONE TO TWICE A DAY, AS NEEDED
     Route: 048
  5. HYDROXYCHLOROQUINE [Concomitant]
     Active Substance: HYDROXYCHLOROQUINE
     Indication: OSTEOARTHRITIS
     Route: 048
  6. LANSOPRAZOLE. [Concomitant]
     Active Substance: LANSOPRAZOLE
     Indication: GASTROOESOPHAGEAL REFLUX DISEASE
     Route: 048
  7. ETODOLAC. [Concomitant]
     Active Substance: ETODOLAC
     Indication: OSTEOARTHRITIS
     Route: 048
  8. GABAPENTIN. [Concomitant]
     Active Substance: GABAPENTIN
     Indication: PAIN
     Route: 048
  9. TIZANIDINE. [Concomitant]
     Active Substance: TIZANIDINE
     Indication: MUSCLE RELAXANT THERAPY
     Dosage: 2-3 TIMES A DAY AS NEEDED
     Route: 048
  10. OXYCODONE [Concomitant]
     Active Substance: OXYCODONE
     Indication: BREAKTHROUGH PAIN
     Dosage: ONCE OR TWICE A DAY
     Route: 048

REACTIONS (7)
  - Intentional dose omission [Not Recovered/Not Resolved]
  - Wrong technique in product usage process [Not Recovered/Not Resolved]
  - Product packaging difficult to open [Unknown]
  - Product adhesion issue [Unknown]
  - Feeling abnormal [Not Recovered/Not Resolved]
  - Oral administration complication [Unknown]
  - Somnolence [Not Recovered/Not Resolved]

NARRATIVE: CASE EVENT DATE: 201809
